FAERS Safety Report 6684969-0 (Version None)
Quarter: 2010Q2

REPORT INFORMATION
  Report Type: 
  Country: None (occurrence: None)
  Receive Date: 20100416
  Receipt Date: 20100405
  Transmission Date: 20101027
  Serious: Yes (Hospitalization)
  Sender: FDA-Public Use
  Company Number: US-SANOFI-AVENTIS-2010SA020195

PATIENT
  Age: 65 Year
  Sex: Female

DRUGS (3)
  1. LANTUS [Suspect]
     Route: 058
  2. HUMALOG [Suspect]
     Dosage: 4 UNITS BEFORE MEALS DOSE:4 UNIT(S)
     Route: 058
  3. STALEVO 100 [Concomitant]

REACTIONS (4)
  - CONFUSIONAL STATE [None]
  - DIABETIC KETOACIDOSIS [None]
  - HYPERGLYCAEMIA [None]
  - NAUSEA [None]
